FAERS Safety Report 5145614-9 (Version None)
Quarter: 2006Q4

REPORT INFORMATION
  Report Type: 
  Country: None (occurrence: None)
  Receive Date: 20061101
  Receipt Date: 20061017
  Transmission Date: 20070319
  Serious: No
  Sender: FDA-Public Use
  Company Number: 06-001195

PATIENT
  Age: 19 Year
  Sex: Female
  Weight: 88.4 kg

DRUGS (2)
  1. LOESTRIN 24 FE (ETHINYL ESTRADIOL, FERROUS FUMARATE, NORETHINDRONE ACE [Suspect]
     Indication: MENSTRUATION IRREGULAR
     Dosage: QD, ORAL
     Route: 048
     Dates: start: 20060401
  2. SYNTHROID [Concomitant]

REACTIONS (3)
  - APPENDICITIS [None]
  - INCREASED APPETITE [None]
  - WEIGHT INCREASED [None]
